FAERS Safety Report 13110280 (Version 1)
Quarter: 2017Q1

REPORT INFORMATION
  Report Type: Spontaneous
  Country: US (occurrence: US)
  Receive Date: 20170112
  Receipt Date: 20170112
  Transmission Date: 20170428
  Serious: No
  Sender: FDA-Public Use
  Company Number: US-ROCHE-GNE304534

PATIENT
  Age: 26 Year
  Sex: Male
  Weight: 60.93 kg

DRUGS (6)
  1. ACTIVASE [Suspect]
     Active Substance: ALTEPLASE
     Dosage: 1 MG, UNK
     Route: 040
     Dates: start: 20100719, end: 20100720
  2. ACTIVASE [Suspect]
     Active Substance: ALTEPLASE
     Dosage: 1.5 MG/HR, CONTINUOUS
     Route: 042
     Dates: start: 20100714, end: 20100715
  3. ACTIVASE [Suspect]
     Active Substance: ALTEPLASE
     Indication: DEEP VEIN THROMBOSIS
     Dosage: 1 MG, UNK
     Route: 040
     Dates: start: 20100714
  4. HEPARIN [Concomitant]
     Active Substance: HEPARIN SODIUM
     Indication: PRODUCT USED FOR UNKNOWN INDICATION
     Dosage: UNK
     Route: 065
     Dates: start: 20100713
  5. WARFARIN [Concomitant]
     Active Substance: WARFARIN
     Indication: PRODUCT USED FOR UNKNOWN INDICATION
  6. ACTIVASE [Suspect]
     Active Substance: ALTEPLASE
     Dosage: 1.5 MG/HR, CONTINUOUS
     Route: 042
     Dates: start: 20100720

REACTIONS (1)
  - International normalised ratio decreased [Unknown]

NARRATIVE: CASE EVENT DATE: 20100721
